FAERS Safety Report 25032096 (Version 1)
Quarter: 2025Q1

REPORT INFORMATION
  Report Type: Spontaneous
  Country: TR (occurrence: TR)
  Receive Date: 20250303
  Receipt Date: 20250303
  Transmission Date: 20250409
  Serious: Yes (Other)
  Sender: ALEXION PHARMACEUTICALS
  Company Number: TR-ASTRAZENECA-202502TUR020552TR

PATIENT
  Age: 30 Year

DRUGS (6)
  1. FASENRA [Suspect]
     Active Substance: BENRALIZUMAB
  2. FOSTER [Concomitant]
     Active Substance: BECLOMETHASONE\FORMOTEROL
     Route: 065
  3. DESLORATADINE\MONTELUKAST SODIUM [Concomitant]
     Active Substance: DESLORATADINE\MONTELUKAST SODIUM
     Route: 065
  4. PHENIRAMINE [Concomitant]
     Active Substance: PHENIRAMINE
     Route: 065
  5. Prednol [Concomitant]
     Route: 065
  6. ADRENALIN [Concomitant]
     Active Substance: EPINEPHRINE
     Route: 065

REACTIONS (4)
  - Dizziness [Recovering/Resolving]
  - Balance disorder [Recovering/Resolving]
  - Hypotension [Recovering/Resolving]
  - Oedema [Recovering/Resolving]
